FAERS Safety Report 14159268 (Version 1)
Quarter: 2017Q4

REPORT INFORMATION
  Report Type: Report from Study
  Country: None (occurrence: BE)
  Receive Date: 20171103
  Receipt Date: 20171103
  Transmission Date: 20180321
  Serious: Yes (Death)
  Sender: FDA-Public Use
  Company Number: BE-ABBVIE-17P-013-2149669-00

PATIENT
  Age: 67 Year
  Sex: Male
  Weight: 83.6 kg

DRUGS (1)
  1. VENCLYXTO [Suspect]
     Active Substance: VENETOCLAX
     Indication: MANTLE CELL LYMPHOMA
     Route: 048
     Dates: start: 20170518, end: 20171002

REACTIONS (4)
  - Abdominal pain [Unknown]
  - Hyperthermia [Unknown]
  - Diarrhoea [Unknown]
  - Disease progression [Fatal]

NARRATIVE: CASE EVENT DATE: 20170929
